FAERS Safety Report 4716562-0 (Version None)
Quarter: 2005Q3

REPORT INFORMATION
  Report Type: 
  Country: None (occurrence: None)
  Receive Date: 20050714
  Receipt Date: 20050706
  Transmission Date: 20060218
  Serious: Yes (Other)
  Sender: FDA-Public Use
  Company Number: 2005094694

PATIENT
  Age: 64 Year
  Sex: Male
  Weight: 75 kg

DRUGS (3)
  1. NEURONTIN [Suspect]
     Indication: PAIN
     Dosage: 900 MG (300 MG, 3 IN 1 D), ORAL
     Route: 048
     Dates: start: 20050407
  2. CIPROFLOXACIN (CIPROFLOXAICN) [Concomitant]
  3. DEXIBUPROFEN (DEXIBUPROFEN) [Concomitant]

REACTIONS (8)
  - ANAESTHETIC COMPLICATION [None]
  - PAIN [None]
  - POST PROCEDURAL COMPLICATION [None]
  - PROCEDURAL PAIN [None]
  - RENAL PAIN [None]
  - URETHRAL STRICTURE [None]
  - URINARY INCONTINENCE [None]
  - URINARY RETENTION [None]
